FAERS Safety Report 9856368 (Version 2)
Quarter: 2014Q1

REPORT INFORMATION
  Report Type: Spontaneous
  Country: US (occurrence: US)
  Receive Date: 20140130
  Receipt Date: 20140214
  Transmission Date: 20141002
  Serious: No
  Sender: FDA-Public Use
  Company Number: US-PFIZER INC-2014027957

PATIENT
  Age: 62 Year
  Sex: Female
  Weight: 106.58 kg

DRUGS (10)
  1. LYRICA [Suspect]
     Indication: DIABETIC NEUROPATHY
     Dosage: 100 MG, 3X/DAY
     Route: 048
     Dates: start: 201204, end: 20140117
  2. LYRICA [Suspect]
     Dosage: 200 MG (2 CAPSULES OF 100 MG), 3X/DAY
     Route: 048
     Dates: start: 20140117
  3. METFORMIN [Concomitant]
     Dosage: 1000 MG, 2X/DAY
  4. LISINOPRIL/HYDROCHLOROTHIAZIDE [Concomitant]
     Dosage: 10/12.5 MG, 1X/DAY
  5. PROZAC [Concomitant]
     Dosage: 10 MG 1X/DAY
  6. PROZAC [Concomitant]
     Dosage: 20 MG, 1X/DAY
  7. SYNTHROID [Concomitant]
     Dosage: 25 MG, 1X/DAY
  8. JANUVIA [Concomitant]
     Dosage: 100 MG, 1X/DAY
  9. CRESTOR [Concomitant]
     Dosage: 10 MG, 1X/DAY
  10. BUSPIRONE [Concomitant]
     Dosage: 10 MG, 2X/DAY

REACTIONS (3)
  - Fall [Unknown]
  - Paraesthesia [Unknown]
  - Malaise [Unknown]
